FAERS Safety Report 11910739 (Version 2)
Quarter: 2016Q1

REPORT INFORMATION
  Report Type: Report from Study
  Country: US (occurrence: US)
  Receive Date: 20160112
  Receipt Date: 20160119
  Transmission Date: 20160526
  Serious: Yes (Hospitalization, Other)
  Sender: FDA-Public Use
  Company Number: US-BAYER-2016-004490

PATIENT
  Age: 62 Year
  Sex: Female
  Weight: 77.98 kg

DRUGS (1)
  1. ADEMPAS [Suspect]
     Active Substance: RIOCIGUAT
     Indication: PULMONARY ARTERIAL HYPERTENSION
     Dosage: 0.5 MG, TID
     Route: 048
     Dates: start: 20140307

REACTIONS (7)
  - Dyspnoea [None]
  - Feeling abnormal [None]
  - Thrombosis [Recovered/Resolved]
  - Face oedema [Unknown]
  - Pain in extremity [None]
  - Hospitalisation [None]
  - Oedema peripheral [Unknown]

NARRATIVE: CASE EVENT DATE: 201512
